FAERS Safety Report 4461247-1 (Version None)
Quarter: 2004Q3

REPORT INFORMATION
  Report Type: 
  Country: None (occurrence: None)
  Receive Date: 20040928
  Receipt Date: 20040917
  Transmission Date: 20050211
  Serious: Yes (Hospitalization)
  Sender: FDA-Public Use
  Company Number: US-ROCHE-381001

PATIENT
  Age: 9 Year
  Sex: Female

DRUGS (2)
  1. TORADOL [Suspect]
     Indication: BACK PAIN
     Route: 042
     Dates: start: 20040813, end: 20040813
  2. TYLENOL W/ CODEINE NO. 3 [Concomitant]
     Indication: BACK PAIN
     Route: 048
     Dates: start: 20040815

REACTIONS (5)
  - ABASIA [None]
  - ASTHENIA [None]
  - DYSKINESIA [None]
  - MEDICATION ERROR [None]
  - TREMOR [None]
